FAERS Safety Report 5128985-9 (Version None)
Quarter: 2006Q4

REPORT INFORMATION
  Report Type: 
  Country: None (occurrence: None)
  Receive Date: 20061011
  Receipt Date: 20060927
  Transmission Date: 20070319
  Serious: Yes (Other)
  Sender: FDA-Public Use
  Company Number: 06101872

PATIENT
  Age: 55 Year
  Sex: Male

DRUGS (2)
  1. NYSTATIN CREAM USP, 100,000 UNITS PER GRAM 15G [Suspect]
     Indication: GENITAL INFECTION FUNGAL
     Dosage: TOPICAL
     Route: 061
  2. PHENOBARBITAL (PHENOBARBITONE) [Concomitant]

REACTIONS (2)
  - CONDITION AGGRAVATED [None]
  - CONVULSION [None]
